FAERS Safety Report 5579116-2 (Version None)
Quarter: 2008Q1

REPORT INFORMATION
  Report Type: 
  Country: None (occurrence: None)
  Receive Date: 20080102
  Receipt Date: 20071228
  Transmission Date: 20080703
  Serious: Yes (Other)
  Sender: FDA-Public Use
  Company Number: PHFR2007GB03717

PATIENT
  Age: 79 Year

DRUGS (1)
  1. DIOVAN [Suspect]
     Route: 065

REACTIONS (2)
  - DYSPHAGIA [None]
  - MOTOR NEURONE DISEASE [None]
